FAERS Safety Report 17446522 (Version 1)
Quarter: 2020Q1

REPORT INFORMATION
  Report Type: Spontaneous
  Country: FR (occurrence: FR)
  Receive Date: 20200221
  Receipt Date: 20200221
  Transmission Date: 20200409
  Serious: Yes (Life-Threatening)
  Sender: FDA-Public Use
  Company Number: FR-MYLANLABS-2020M1019621

PATIENT
  Age: 27 Year
  Sex: Male
  Weight: 100 kg

DRUGS (7)
  1. SUFENTANIL [Suspect]
     Active Substance: SUFENTANIL
     Indication: ANAESTHESIA
     Dosage: 10 MICROGRAM
     Route: 041
     Dates: start: 20190816, end: 20190816
  2. ETOMIDATE LIPURO [Suspect]
     Active Substance: ETOMIDATE
     Indication: SEDATIVE THERAPY
     Dosage: 40 MILLIGRAM
     Route: 041
     Dates: start: 20190816, end: 20190816
  3. FIBRINOGENE [Suspect]
     Active Substance: FIBRINOGEN HUMAN
     Indication: SHOCK HAEMORRHAGIC
     Dosage: 2 GRAM
     Route: 042
     Dates: start: 20190817, end: 20190817
  4. MIDAZOLAM HYDROCHLORIDE. [Suspect]
     Active Substance: MIDAZOLAM HYDROCHLORIDE
     Indication: ANAESTHESIA
     Dosage: 71 MILLIGRAM
     Route: 042
     Dates: start: 20190816, end: 20190817
  5. SUXAMETHONIUM                      /00057702/ [Suspect]
     Active Substance: SUCCINYLCHOLINE
     Indication: SEDATIVE THERAPY
     Dosage: 100 MILLIGRAM
     Route: 041
     Dates: start: 20190816, end: 20190816
  6. AUGMENTIN [Suspect]
     Active Substance: AMOXICILLIN\CLAVULANATE POTASSIUM
     Indication: ANTIBIOTIC PROPHYLAXIS
     Dosage: 2 GRAM
     Route: 040
     Dates: start: 20190816, end: 20190816
  7. ATRACURIUM HOSPIRA [Suspect]
     Active Substance: ATRACURIUM BESYLATE
     Indication: ANAESTHESIA
     Dosage: 40 MILLIGRAM
     Route: 040
     Dates: start: 20190817, end: 20190817

REACTIONS (1)
  - Anaphylactic shock [Recovered/Resolved]

NARRATIVE: CASE EVENT DATE: 20190817
